FAERS Safety Report 5693551-3 (Version None)
Quarter: 2008Q2

REPORT INFORMATION
  Report Type: 
  Country: None (occurrence: None)
  Receive Date: 20080402
  Receipt Date: 20080402
  Transmission Date: 20081010
  Serious: No
  Sender: FDA-Public Use
  Company Number: None

PATIENT
  Age: 4 Year
  Sex: Female
  Weight: 18.5975 kg

DRUGS (2)
  1. SINGULAIR [Suspect]
     Indication: MULTIPLE ALLERGIES
     Dosage: ONE TABLET DAILY AT SUPPER
     Dates: start: 20040701, end: 20071101
  2. SINGULAIR [Suspect]
     Indication: RESPIRATORY DISORDER
     Dosage: ONE TABLET DAILY AT SUPPER
     Dates: start: 20040701, end: 20071101

REACTIONS (14)
  - ABDOMINAL PAIN UPPER [None]
  - AGGRESSION [None]
  - ANXIETY [None]
  - COGNITIVE DISORDER [None]
  - DECREASED INTEREST [None]
  - DEPRESSED MOOD [None]
  - DISTURBANCE IN ATTENTION [None]
  - GASTROOESOPHAGEAL REFLUX DISEASE [None]
  - MORBID THOUGHTS [None]
  - PERSONALITY CHANGE [None]
  - PSYCHOMOTOR HYPERACTIVITY [None]
  - RESTLESSNESS [None]
  - SCHOOL REFUSAL [None]
  - SOCIAL AVOIDANT BEHAVIOUR [None]
